FAERS Safety Report 9486652 (Version 1)
Quarter: 2013Q3

REPORT INFORMATION
  Report Type: Spontaneous
  Country: FR (occurrence: FR)
  Receive Date: 20130829
  Receipt Date: 20130829
  Transmission Date: 20140515
  Serious: Yes (Hospitalization, Other)
  Sender: FDA-Public Use
  Company Number: FR-CELGENEUS-056-21880-13082250

PATIENT
  Age: 41 Year
  Sex: Male

DRUGS (2)
  1. REVLIMID [Suspect]
     Indication: PLASMA CELL MYELOMA
     Route: 048
  2. DEXAMETHASONE [Concomitant]
     Indication: PLASMA CELL MYELOMA
     Route: 065

REACTIONS (15)
  - Cognitive disorder [Recovering/Resolving]
  - Ataxia [Unknown]
  - Neutropenia [Unknown]
  - Pancytopenia [Unknown]
  - Gastroenteritis salmonella [Unknown]
  - Amnesia [Recovering/Resolving]
  - Psychomotor skills impaired [Unknown]
  - Hyporeflexia [Unknown]
  - Cerebral hypoperfusion [Unknown]
  - Peripheral sensory neuropathy [Unknown]
  - Apathy [Unknown]
  - Decreased appetite [Unknown]
  - Somnolence [Unknown]
  - Decubitus ulcer [Unknown]
  - Infection [Unknown]
